FAERS Safety Report 7883251-3 (Version None)
Quarter: 2011Q4

REPORT INFORMATION
  Report Type: 
  Country: None (occurrence: None)
  Receive Date: 20111031
  Receipt Date: 20111017
  Transmission Date: 20120403
  Serious: Yes (Death)
  Sender: FDA-Public Use
  Company Number: UTC-011359

PATIENT
  Age: 50 Year
  Sex: Female
  Weight: 63.64 kg

DRUGS (4)
  1. DIURETICS (DIURETICS) [Concomitant]
  2. LETAIRIS [Concomitant]
  3. TYVASO [Suspect]
     Indication: PULMONARY ARTERIAL HYPERTENSION
     Dosage: 144 MCG (36 MCG, 4 IN 1 D), INHALATION
     Route: 055
     Dates: start: 20110224
  4. ADCIRCA [Concomitant]

REACTIONS (1)
  - DEATH [None]
